FAERS Safety Report 21372365 (Version 1)
Quarter: 2022Q3

REPORT INFORMATION
  Report Type: Spontaneous
  Country: CH (occurrence: CH)
  Receive Date: 20220924
  Receipt Date: 20220924
  Transmission Date: 20221027
  Serious: Yes (Other)
  Sender: FDA-Public Use
  Company Number: None

PATIENT
  Age: 80 Year
  Sex: Female

DRUGS (11)
  1. VANCOCIN [Suspect]
     Active Substance: VANCOMYCIN HYDROCHLORIDE
     Indication: Product used for unknown indication
     Dosage: UNIT DOSE : 1500 MG, FREQUENCY TIME : 1 HRS, DURATION : 12 DAYS
     Route: 041
     Dates: start: 20220218, end: 20220302
  2. AMOXICILLIN\CLAVULANATE POTASSIUM [Suspect]
     Active Substance: AMOXICILLIN\CLAVULANATE POTASSIUM
     Indication: Product used for unknown indication
     Dosage: UNIT DOSE : 2200 MG, FREQUENCY TIME : 8 HRS, DURATION : 15 DAY
     Route: 041
     Dates: start: 20220215, end: 20220302
  3. METAMIZOLE [Suspect]
     Active Substance: METAMIZOLE
     Indication: Product used for unknown indication
     Dosage: UNIT DOSE : 500 MG, FREQUENCY TIME : 6 HRS, DURATION :14 DAYS
     Route: 048
     Dates: start: 20220201, end: 20220215
  4. METAMIZOLE [Suspect]
     Active Substance: METAMIZOLE
     Dosage: AS NECESSARY
     Route: 048
     Dates: start: 20220216, end: 20220302
  5. IBUPROFEN [Suspect]
     Active Substance: IBUPROFEN
     Indication: Product used for unknown indication
     Dosage: UNIT DOSE : 600 MG, FREQUENCY TIME : 8 HRS, DURATION : 14 DAYS
     Route: 048
     Dates: start: 20220216, end: 20220302
  6. PANTOPRAZOLE SODIUM [Suspect]
     Active Substance: PANTOPRAZOLE SODIUM
     Indication: Product used for unknown indication
     Dosage: UNIT DOSE : 40 MG, FREQUENCY TIME : 1 DAY, DURATION : 14 DAYS
     Route: 048
     Dates: start: 20220216, end: 20220302
  7. METOPROLOL SUCCINATE [Concomitant]
     Active Substance: METOPROLOL SUCCINATE
     Indication: Product used for unknown indication
  8. FOSINOPRIL HCT MEPHA [Concomitant]
     Indication: Product used for unknown indication
  9. DAFALGAN [Concomitant]
     Active Substance: ACETAMINOPHEN
     Indication: Product used for unknown indication
  10. LEVOTHYROXINE [Concomitant]
     Active Substance: LEVOTHYROXINE
     Indication: Product used for unknown indication
  11. FRAGMIN [Concomitant]
     Active Substance: DALTEPARIN SODIUM
     Indication: Product used for unknown indication

REACTIONS (2)
  - Leukopenia [Recovered/Resolved]
  - Rash [Recovered/Resolved]

NARRATIVE: CASE EVENT DATE: 20220226
